FAERS Safety Report 18980331 (Version 1)
Quarter: 2021Q1

REPORT INFORMATION
  Report Type: Spontaneous
  Country: US (occurrence: US)
  Receive Date: 20210306
  Receipt Date: 20210306
  Transmission Date: 20210420
  Serious: Yes (Life-Threatening, Hospitalization, Other)
  Sender: FDA-Public Use
  Company Number: None

PATIENT
  Sex: Female
  Weight: 52.65 kg

DRUGS (6)
  1. KLONOPIN [Suspect]
     Active Substance: CLONAZEPAM
     Indication: ANXIETY
     Route: 048
     Dates: start: 19940701, end: 20080327
  2. MULTIVITAMIN [Concomitant]
     Active Substance: VITAMINS
  3. KLONOPIN [Suspect]
     Active Substance: CLONAZEPAM
     Indication: PANIC ATTACK
     Route: 048
     Dates: start: 19940701, end: 20080327
  4. LAMICTAL [Concomitant]
     Active Substance: LAMOTRIGINE
  5. EFFEXOR XR [Concomitant]
     Active Substance: VENLAFAXINE HYDROCHLORIDE
  6. VITAMIN C [Concomitant]
     Active Substance: ASCORBIC ACID

REACTIONS (14)
  - Withdrawal syndrome [None]
  - Ear injury [None]
  - Psychotic disorder [None]
  - Cerebral haemorrhage [None]
  - Femur fracture [None]
  - Clavicle fracture [None]
  - Fall [None]
  - Deafness [None]
  - Amnesia [None]
  - Anxiety [None]
  - Rib fracture [None]
  - Pneumothorax [None]
  - Pelvic fracture [None]
  - Hallucination [None]
